FAERS Safety Report 8457423-3 (Version None)
Quarter: 2012Q2

REPORT INFORMATION
  Report Type: 
  Country: None (occurrence: None)
  Receive Date: 20120621
  Receipt Date: 20120615
  Transmission Date: 20120825
  Serious: Yes (Death, Other)
  Sender: FDA-Public Use
  Company Number: JP-ALLERGAN-1208580US

PATIENT
  Age: 82 Year

DRUGS (1)
  1. BOTOX [Suspect]
     Indication: MUSCLE SPASMS
     Route: 030

REACTIONS (2)
  - DEATH [None]
  - PYREXIA [None]
